FAERS Safety Report 16942161 (Version 2)
Quarter: 2019Q4

REPORT INFORMATION
  Report Type: Report from Study
  Country: AR (occurrence: AR)
  Receive Date: 20191021
  Receipt Date: 20191203
  Transmission Date: 20200122
  Serious: Yes (Hospitalization, Other)
  Sender: FDA-Public Use
  Company Number: AR-BAYER-2019-186950

PATIENT
  Age: 70 Year
  Sex: Male

DRUGS (3)
  1. STIVARGA [Suspect]
     Active Substance: REGORAFENIB
     Indication: COLORECTAL CANCER METASTATIC
     Dosage: 80 MG, QD
     Dates: start: 20190605, end: 2019
  2. XARELTO [Concomitant]
     Active Substance: RIVAROXABAN
     Dosage: UNK
  3. STIVARGA [Suspect]
     Active Substance: REGORAFENIB
     Indication: COLORECTAL CANCER METASTATIC
     Dosage: 130 MG, QD
     Dates: start: 2019

REACTIONS (3)
  - Decreased appetite [Recovering/Resolving]
  - Fatigue [Recovering/Resolving]
  - Feeling abnormal [Recovering/Resolving]

NARRATIVE: CASE EVENT DATE: 20191004
